FAERS Safety Report 12829123 (Version 1)
Quarter: 2016Q4

REPORT INFORMATION
  Report Type: Spontaneous
  Country: US (occurrence: US)
  Receive Date: 20161007
  Receipt Date: 20161007
  Transmission Date: 20170207
  Serious: No
  Sender: FDA-Public Use
  Company Number: US-SA-2015SA223228

PATIENT
  Age: 37 Year
  Sex: Male

DRUGS (6)
  1. HYDROCORTISONE. [Concomitant]
     Active Substance: HYDROCORTISONE
  2. PROZAC [Concomitant]
     Active Substance: FLUOXETINE HYDROCHLORIDE
  3. SEROQUEL [Concomitant]
     Active Substance: QUETIAPINE FUMARATE
  4. BACLOFEN. [Concomitant]
     Active Substance: BACLOFEN
  5. MIRTAZAPINE. [Concomitant]
     Active Substance: MIRTAZAPINE
  6. AUBAGIO [Suspect]
     Active Substance: TERIFLUNOMIDE
     Indication: MULTIPLE SCLEROSIS
     Route: 048

REACTIONS (1)
  - Pain in extremity [Unknown]
